FAERS Safety Report 6747194-0 (Version None)
Quarter: 2010Q2

REPORT INFORMATION
  Report Type: 
  Country: None (occurrence: None)
  Receive Date: 20100528
  Receipt Date: 20100518
  Transmission Date: 20101027
  Serious: Yes (Death)
  Sender: FDA-Public Use
  Company Number: PL-ROCHE-701593

PATIENT
  Sex: Male
  Weight: 85 kg

DRUGS (7)
  1. XELODA [Suspect]
     Indication: COLORECTAL CANCER
     Route: 048
     Dates: start: 20100218, end: 20100301
  2. POLPRAZOL [Concomitant]
  3. TRANSTEC [Concomitant]
  4. MOVALIS [Concomitant]
  5. NOSPA [Concomitant]
  6. KALDYUM [Concomitant]
  7. FUROSEMID [Concomitant]

REACTIONS (5)
  - ASTHENIA [None]
  - DEATH [None]
  - DIARRHOEA [None]
  - ORAL FUNGAL INFECTION [None]
  - PYREXIA [None]
